FAERS Safety Report 18219019 (Version 1)
Quarter: 2020Q3

REPORT INFORMATION
  Report Type: Spontaneous
  Country: JP (occurrence: JP)
  Receive Date: 20200901
  Receipt Date: 20200901
  Transmission Date: 20201103
  Serious: Yes (Other)
  Sender: FDA-Public Use
  Company Number: JP-ALLERGAN-2033142US

PATIENT
  Sex: Female
  Weight: 51.4 kg

DRUGS (7)
  1. SUVOREXANT. [Concomitant]
     Active Substance: SUVOREXANT
  2. ASENAPINE MALEATE ? BP [Suspect]
     Active Substance: ASENAPINE MALEATE
     Indication: SCHIZOPHRENIA
     Dosage: 10 MG, QD
     Route: 060
     Dates: start: 20200518, end: 20200603
  3. ARIPIPRAZOLE. [Concomitant]
     Active Substance: ARIPIPRAZOLE
  4. CHLORPROMAZINE PHENOLPHTHALINATE [Concomitant]
  5. ASENAPINE MALEATE ? BP [Suspect]
     Active Substance: ASENAPINE MALEATE
     Dosage: 10 MG, BID
     Route: 060
     Dates: start: 20200508, end: 20200517
  6. ESTAZOLAM. [Concomitant]
     Active Substance: ESTAZOLAM
  7. RISPERIDONE. [Concomitant]
     Active Substance: RISPERIDONE

REACTIONS (1)
  - Urinary retention [Recovering/Resolving]

NARRATIVE: CASE EVENT DATE: 20200518
